FAERS Safety Report 8511770-5 (Version None)
Quarter: 2012Q3

REPORT INFORMATION
  Report Type: 
  Country: None (occurrence: None)
  Receive Date: 20120716
  Receipt Date: 20120710
  Transmission Date: 20120928
  Serious: Yes (Hospitalization)
  Sender: FDA-Public Use
  Company Number: PHEH2012US013561

PATIENT

DRUGS (7)
  1. REVLIMID [Concomitant]
  2. METFORMIN HYDROCHLORIDE [Concomitant]
  3. ZOMETA [Suspect]
     Indication: MULTIPLE MYELOMA
     Dosage: 4 MG, UNK
     Route: 042
     Dates: start: 20120702
  4. DECADRON [Concomitant]
     Dosage: UNK UKN, UNK, EVERY WEEK
  5. XANAX [Concomitant]
  6. GLYBURIDE [Concomitant]
  7. LOVENOX [Concomitant]

REACTIONS (3)
  - ARTHRITIS [None]
  - ARTHRALGIA [None]
  - JOINT SWELLING [None]
